FAERS Safety Report 11673649 (Version 1)
Quarter: 2015Q4

REPORT INFORMATION
  Report Type: Other
  Country: BE (occurrence: BE)
  Receive Date: 20151028
  Receipt Date: 20151028
  Transmission Date: 20160304
  Serious: Yes (Hospitalization)
  Sender: FDA-Public Use
  Company Number: BE-ENDO PHARMACEUTICALS INC-2015-003563

PATIENT
  Age: 77 Year
  Sex: Female

DRUGS (1)
  1. ALLOPURINOL TABLETS [Suspect]
     Active Substance: ALLOPURINOL
     Indication: PRODUCT USED FOR UNKNOWN INDICATION
     Route: 065

REACTIONS (3)
  - Rash pruritic [Unknown]
  - Stress cardiomyopathy [Recovering/Resolving]
  - Rash erythematous [Unknown]
